FAERS Safety Report 7718162-7 (Version None)
Quarter: 2011Q3

REPORT INFORMATION
  Report Type: 
  Country: None (occurrence: None)
  Receive Date: 20110830
  Receipt Date: 20110824
  Transmission Date: 20111222
  Serious: Yes (Hospitalization, Other)
  Sender: FDA-Public Use
  Company Number: CZ-ROCHE-798801

PATIENT
  Age: 76 Year
  Sex: Female

DRUGS (4)
  1. LUSOPRESS [Concomitant]
  2. XELODA [Suspect]
     Route: 048
     Dates: start: 20110711, end: 20110724
  3. HELICID [Concomitant]
  4. XELODA [Suspect]
     Route: 048
     Dates: start: 20110801, end: 20110814

REACTIONS (3)
  - CHILLS [None]
  - TRANSIENT ISCHAEMIC ATTACK [None]
  - DIARRHOEA [None]
